FAERS Safety Report 7514591-5 (Version None)
Quarter: 2011Q2

REPORT INFORMATION
  Report Type: 
  Country: None (occurrence: None)
  Receive Date: 20110601
  Receipt Date: 20110519
  Transmission Date: 20111010
  Serious: Yes (Hospitalization)
  Sender: FDA-Public Use
  Company Number: US-ELI_LILLY_AND_COMPANY-US201010005886

PATIENT
  Age: 39 Year
  Sex: Male

DRUGS (6)
  1. ALBUTEROL SULFATE AUTOHALER [Concomitant]
     Dosage: 3 ML, EVERY 8 HRS
  2. OMEPRAZOLE [Concomitant]
     Dosage: 40 MG, QD
  3. HUMALOG [Suspect]
     Dosage: 25U, TID
     Route: 065
  4. INSULIN GLARGINE [Concomitant]
     Dosage: UNK, UNKNOWN
     Route: 065
  5. CETIRIZINE HCL [Concomitant]
     Dosage: 10 MG, QD
  6. CETIRIZINE HCL [Concomitant]
     Dosage: 800 U, OTHER

REACTIONS (3)
  - INTENTIONAL OVERDOSE [None]
  - SUICIDE ATTEMPT [None]
  - HYPOGLYCAEMIA [None]
